FAERS Safety Report 18131984 (Version 19)
Quarter: 2022Q1

REPORT INFORMATION
  Report Type: Report from Study
  Country: ES (occurrence: None)
  Receive Date: 20200810
  Receipt Date: 20220128
  Transmission Date: 20220424
  Serious: Yes (Hospitalization)
  Sender: FDA-Public Use
  Company Number: ES-ROCHE-2641691

PATIENT
  Age: 47 Year
  Sex: Male
  Weight: 69 kg

DRUGS (58)
  1. GLOFITAMAB [Suspect]
     Active Substance: GLOFITAMAB
     Indication: Non-Hodgkin^s lymphoma
     Dosage: LAST DOSE OF RO7082859 ADMINISTERED PRIOR SAE 2.5 MG?START DATE OF MOST RECENT DOSE OF RO7082859 PRI
     Route: 042
     Dates: start: 20200709
  2. OBINUTUZUMAB [Suspect]
     Active Substance: OBINUTUZUMAB
     Indication: Non-Hodgkin^s lymphoma
     Dosage: LAST DOSE OBINUTUZUMAB ADMINISTERED PRIOR SAE 1000 MG?START DATE OF MOST RECENT DOSE OF OBINUTUZUMAB
     Route: 042
     Dates: start: 20200625
  3. POLATUZUMAB VEDOTIN [Suspect]
     Active Substance: POLATUZUMAB VEDOTIN
     Indication: Non-Hodgkin^s lymphoma
     Dosage: LAST DOSE OF POLATUZUMAB VEDOTIN ADMINISTERED PRIOR AE 1.8 MG?LAST DOSE OF POLATUZUMAB VEDOTIN ADMIN
     Route: 042
     Dates: start: 20200626
  4. TOCILIZUMAB [Suspect]
     Active Substance: TOCILIZUMAB
     Indication: Non-Hodgkin^s lymphoma
     Dosage: DOSE LAST TOCILIZUMAB ADMINISTERED ADMIN PRIOR AE/SAE 560 MG AND TOTAL VOLUME 100 ML?START DATE OF M
     Route: 042
     Dates: start: 20200819
  5. DEXAMETHASONE [Concomitant]
     Active Substance: DEXAMETHASONE
     Route: 042
     Dates: start: 20200625, end: 20200625
  6. METHYLPREDNISOLONE [Concomitant]
     Active Substance: METHYLPREDNISOLONE
     Route: 041
     Dates: start: 20200709, end: 20200709
  7. METHYLPREDNISOLONE [Concomitant]
     Active Substance: METHYLPREDNISOLONE
     Route: 042
     Dates: start: 20200715, end: 20200715
  8. METHYLPREDNISOLONE [Concomitant]
     Active Substance: METHYLPREDNISOLONE
     Route: 041
     Dates: start: 20200722, end: 20200722
  9. METHYLPREDNISOLONE [Concomitant]
     Active Substance: METHYLPREDNISOLONE
     Route: 041
     Dates: start: 20200818, end: 20200818
  10. DEXCHLORPHENIRAMINE [Concomitant]
     Active Substance: DEXCHLORPHENIRAMINE
     Route: 041
     Dates: start: 20200625, end: 20200625
  11. DEXCHLORPHENIRAMINE [Concomitant]
     Active Substance: DEXCHLORPHENIRAMINE
     Route: 042
     Dates: start: 20200626, end: 20200626
  12. DEXCHLORPHENIRAMINE [Concomitant]
     Active Substance: DEXCHLORPHENIRAMINE
     Route: 042
     Dates: start: 20200709, end: 20200709
  13. DEXCHLORPHENIRAMINE [Concomitant]
     Active Substance: DEXCHLORPHENIRAMINE
     Route: 042
     Dates: start: 20200715, end: 20200715
  14. DEXCHLORPHENIRAMINE [Concomitant]
     Active Substance: DEXCHLORPHENIRAMINE
     Route: 041
     Dates: start: 20200722, end: 20200722
  15. DEXCHLORPHENIRAMINE [Concomitant]
     Active Substance: DEXCHLORPHENIRAMINE
     Route: 041
     Dates: start: 20200818, end: 20200818
  16. ACETAMINOPHEN [Concomitant]
     Active Substance: ACETAMINOPHEN
     Indication: Pyrexia
     Route: 042
     Dates: start: 20200709, end: 20200709
  17. ACETAMINOPHEN [Concomitant]
     Active Substance: ACETAMINOPHEN
     Route: 042
     Dates: start: 20200626, end: 20200626
  18. ACETAMINOPHEN [Concomitant]
     Active Substance: ACETAMINOPHEN
     Route: 042
     Dates: start: 20200625, end: 20200625
  19. ACETAMINOPHEN [Concomitant]
     Active Substance: ACETAMINOPHEN
     Route: 041
     Dates: start: 20200722, end: 20200722
  20. ACETAMINOPHEN [Concomitant]
     Active Substance: ACETAMINOPHEN
     Route: 042
     Dates: start: 20200818, end: 20200818
  21. ACETAMINOPHEN [Concomitant]
     Active Substance: ACETAMINOPHEN
     Route: 042
     Dates: start: 20200626, end: 20200626
  22. ACETAMINOPHEN [Concomitant]
     Active Substance: ACETAMINOPHEN
     Route: 042
     Dates: start: 20200722, end: 20200722
  23. LINEZOLID [Concomitant]
     Active Substance: LINEZOLID
     Indication: Device related infection
     Dosage: START DATE: 06/AUG/2020
     Dates: start: 20200806, end: 20200810
  24. HUMAN RED BLOOD CELL [Concomitant]
     Active Substance: HUMAN RED BLOOD CELL
     Indication: Anaemia
     Dates: start: 20200725, end: 20200726
  25. HUMAN RED BLOOD CELL [Concomitant]
     Active Substance: HUMAN RED BLOOD CELL
     Dates: start: 20200820, end: 20200820
  26. HUMAN RED BLOOD CELL [Concomitant]
     Active Substance: HUMAN RED BLOOD CELL
     Dates: start: 20200703, end: 20200703
  27. FENTANYL [Concomitant]
     Active Substance: FENTANYL
     Indication: Tumour pain
     Dates: start: 20200628, end: 20200819
  28. FENTANYL [Concomitant]
     Active Substance: FENTANYL
     Route: 048
     Dates: start: 20200810, end: 20200818
  29. FENTANYL [Concomitant]
     Active Substance: FENTANYL
     Dates: start: 20200610, end: 20200730
  30. RASBURICASE [Concomitant]
     Active Substance: RASBURICASE
     Dates: start: 20200624, end: 20200628
  31. ALLOPURINOL [Concomitant]
     Active Substance: ALLOPURINOL
     Indication: Hyperuricaemia
     Dates: start: 20200610, end: 20200902
  32. ALLOPURINOL [Concomitant]
     Active Substance: ALLOPURINOL
     Dates: start: 20200628, end: 20200902
  33. DIAZEPAM [Concomitant]
     Active Substance: DIAZEPAM
     Dates: start: 20191003, end: 20200713
  34. DIAZEPAM [Concomitant]
     Active Substance: DIAZEPAM
     Dates: start: 20200720, end: 20200902
  35. DIAZEPAM [Concomitant]
     Active Substance: DIAZEPAM
     Dates: start: 20191003, end: 20200713
  36. NEBIVOLOL [Concomitant]
     Active Substance: NEBIVOLOL
     Indication: Hypertension
     Dates: start: 2018, end: 20200708
  37. LOSARTAN [Concomitant]
     Active Substance: LOSARTAN
     Indication: Hypertension
     Dates: start: 2018, end: 20200708
  38. PAROXETINE [Concomitant]
     Active Substance: PAROXETINE
     Indication: Depression
     Dates: start: 2018, end: 20200902
  39. PREDNISONE [Concomitant]
     Active Substance: PREDNISONE
     Indication: Tumour pain
     Dates: start: 20200610, end: 20200622
  40. PREDNISONE [Concomitant]
     Active Substance: PREDNISONE
     Dates: start: 20200813, end: 20200817
  41. FUROSEMIDE [Concomitant]
     Active Substance: FUROSEMIDE
     Dates: start: 20200624, end: 20200628
  42. FUROSEMIDE [Concomitant]
     Active Substance: FUROSEMIDE
     Dates: start: 20200709, end: 20200720
  43. FUROSEMIDE [Concomitant]
     Active Substance: FUROSEMIDE
     Dates: start: 20200817, end: 20200824
  44. GABAPENTIN [Concomitant]
     Active Substance: GABAPENTIN
     Indication: Tumour pain
     Dates: start: 20200813, end: 20200901
  45. METHADONE [Concomitant]
     Active Substance: METHADONE HYDROCHLORIDE
     Indication: Tumour pain
     Dates: start: 20200819, end: 20200901
  46. MORPHINE [Concomitant]
     Active Substance: MORPHINE
     Indication: Tumour pain
     Dates: start: 20200902, end: 20200908
  47. IBUPROFEN [Concomitant]
     Active Substance: IBUPROFEN
     Indication: Tumour pain
     Dates: start: 20200809, end: 20200810
  48. POTASSIUM CHLORIDE [Concomitant]
     Active Substance: POTASSIUM CHLORIDE
     Dates: start: 20200824, end: 20200901
  49. OMEPRAZOLE [Concomitant]
     Active Substance: OMEPRAZOLE
     Dates: start: 202001, end: 20200707
  50. MAGNESIUM [Concomitant]
     Active Substance: MAGNESIUM
     Dates: start: 20200827, end: 20200901
  51. PIPERACILLIN SODIUM\TAZOBACTAM SODIUM [Concomitant]
     Active Substance: PIPERACILLIN SODIUM\TAZOBACTAM SODIUM
     Indication: Cytokine release syndrome
     Dates: start: 20200723, end: 20200727
  52. PIPERACILLIN SODIUM\TAZOBACTAM SODIUM [Concomitant]
     Active Substance: PIPERACILLIN SODIUM\TAZOBACTAM SODIUM
     Dates: start: 20200716
  53. PIPERACILLIN SODIUM\TAZOBACTAM SODIUM [Concomitant]
     Active Substance: PIPERACILLIN SODIUM\TAZOBACTAM SODIUM
     Dates: start: 20200819, end: 20200821
  54. DEXKETOPROFEN [Concomitant]
     Active Substance: DEXKETOPROFEN
     Dates: start: 20200723, end: 20200727
  55. METAMIZOLE [Concomitant]
     Active Substance: METAMIZOLE
     Indication: Cytokine release syndrome
     Dates: start: 20200723, end: 20200727
  56. RETINOL [Concomitant]
     Active Substance: RETINOL
     Indication: Tumour pain
     Dates: start: 20200827, end: 20200901
  57. VITAMIN E [Concomitant]
     Active Substance: .ALPHA.-TOCOPHEROL
     Indication: Tumour pain
     Dates: start: 20200827, end: 20200901
  58. OXYGEN [Concomitant]
     Active Substance: OXYGEN
     Indication: Hypoxia

REACTIONS (4)
  - Cytokine release syndrome [Recovered/Resolved]
  - Cytokine release syndrome [Recovered/Resolved]
  - Neutropenia [Recovered/Resolved]
  - Neutropenia [Recovered/Resolved]

NARRATIVE: CASE EVENT DATE: 20200702
